FAERS Safety Report 4842935-1 (Version None)
Quarter: 2005Q4

REPORT INFORMATION
  Report Type: 
  Country: None (occurrence: None)
  Receive Date: 20051130
  Receipt Date: 20051121
  Transmission Date: 20060501
  Serious: Yes (Hospitalization)
  Sender: FDA-Public Use
  Company Number: 2005-11-1365

PATIENT
  Age: 55 Year
  Sex: Male
  Weight: 87 kg

DRUGS (4)
  1. PEG-INTRON [Suspect]
     Indication: HEPATITIS C
     Dosage: 120 MCG QW SUBCUTANEOUS
     Route: 058
     Dates: start: 20050325
  2. REBETOL [Suspect]
     Indication: HEPATITIS C
     Dosage: 800 MG ORAL
     Route: 048
     Dates: start: 20050325
  3. LOXONIN [Concomitant]
  4. FAMOTIDINE [Concomitant]

REACTIONS (1)
  - RETINAL DETACHMENT [None]
